FAERS Safety Report 4729024-1 (Version None)
Quarter: 2005Q3

REPORT INFORMATION
  Report Type: 
  Country: None (occurrence: None)
  Receive Date: 20050729
  Receipt Date: 20050128
  Transmission Date: 20060218
  Serious: No
  Sender: FDA-Public Use
  Company Number: US-GLAXOSMITHKLINE-A0542857A

PATIENT
  Age: 50 Year
  Sex: Female

DRUGS (2)
  1. IMITREX [Suspect]
     Indication: MIGRAINE
     Route: 048
     Dates: end: 20041101
  2. TYLENOL [Concomitant]

REACTIONS (5)
  - IRRITABILITY [None]
  - NAUSEA [None]
  - NERVOUS SYSTEM DISORDER [None]
  - PANIC ATTACK [None]
  - VOMITING [None]
